FAERS Safety Report 9139288 (Version 2)
Quarter: 2013Q1

REPORT INFORMATION
  Report Type: Spontaneous
  Country: DE (occurrence: DE)
  Receive Date: 20130305
  Receipt Date: 20130322
  Transmission Date: 20140127
  Serious: Yes (Other)
  Sender: FDA-Public Use
  Company Number: DE-PFIZER INC-2013074185

PATIENT
  Sex: Male

DRUGS (3)
  1. INSPRA [Suspect]
     Indication: OEDEMA
     Dosage: 25 MG, SINCE 2 WEEKS
  2. INSPRA [Suspect]
     Indication: REACTION TO DRUG EXCIPIENTS
  3. TORASEMIDE [Concomitant]

REACTIONS (2)
  - Altered state of consciousness [Recovered/Resolved]
  - Irritability [Recovered/Resolved]
